FAERS Safety Report 24055462 (Version 1)
Quarter: 2024Q3

REPORT INFORMATION
  Report Type: Spontaneous
  Country: US (occurrence: US)
  Receive Date: 20240705
  Receipt Date: 20240705
  Transmission Date: 20241016
  Serious: No
  Sender: ROCHE
  Company Number: US-ROCHE-3551309

PATIENT
  Age: 35 Year
  Sex: Female
  Weight: 104.33 kg

DRUGS (5)
  1. ACTEMRA [Suspect]
     Active Substance: TOCILIZUMAB
     Indication: Rheumatoid arthritis
     Dosage: STRENGTH:162 MG / 0.9 ML, STARTED ABOUT 4 YEARS AGO.
     Route: 058
  2. WELLBUTRIN [Concomitant]
     Active Substance: BUPROPION HYDROCHLORIDE
     Indication: Depression
     Dosage: STARTED A FEW YEARS AGO, MAYBE 5 YEARS AGO.
     Route: 048
  3. WELLBUTRIN [Concomitant]
     Active Substance: BUPROPION HYDROCHLORIDE
     Indication: Anxiety
  4. TRAZODONE [Concomitant]
     Active Substance: TRAZODONE HYDROCHLORIDE
     Indication: Insomnia
     Dosage: STARTED ABOUT 5 YEARS AGO. TAKES AS NEEDED. TAKES AT NIGHT
     Route: 048
  5. MELOXICAM [Concomitant]
     Active Substance: MELOXICAM
     Indication: Pain
     Route: 048

REACTIONS (10)
  - Mass [Recovering/Resolving]
  - Rash [Recovered/Resolved]
  - Exposure via skin contact [Unknown]
  - Poor quality product administered [Unknown]
  - Pain [Recovered/Resolved]
  - Muscle tightness [Recovering/Resolving]
  - Underdose [Unknown]
  - Erythema [Recovered/Resolved]
  - Product complaint [Unknown]
  - Product odour abnormal [Unknown]

NARRATIVE: CASE EVENT DATE: 20240418
